FAERS Safety Report 8780594 (Version 10)
Quarter: 2020Q3

REPORT INFORMATION
  Report Type: Report from Study
  Country: DE (occurrence: DE)
  Receive Date: 20120913
  Receipt Date: 20200625
  Transmission Date: 20201105
  Serious: Yes (Death, Life-Threatening, Hospitalization, Other)
  Sender: FDA-Public Use
  Company Number: PHHY2012DE061954

PATIENT
  Age: 76 Year
  Sex: Male
  Weight: 67.4 kg

DRUGS (30)
  1. EBRANTIL [Suspect]
     Active Substance: URAPIDIL
     Indication: HYPERTENSION
     Dosage: 180 MG, QD
     Route: 048
     Dates: start: 20120515, end: 20120714
  2. MUSARIL [Concomitant]
     Active Substance: TETRAZEPAM
     Indication: PRODUCT USED FOR UNKNOWN INDICATION
     Route: 065
     Dates: start: 20111116, end: 20111221
  3. FURESIS COMP [Concomitant]
     Active Substance: FUROSEMIDE\TRIAMTERENE
     Indication: PRODUCT USED FOR UNKNOWN INDICATION
     Dosage: 125 MG
     Route: 065
     Dates: start: 20120727
  4. VALSARTAN. [Concomitant]
     Active Substance: VALSARTAN
     Indication: PRODUCT USED FOR UNKNOWN INDICATION
     Dosage: 80 MG, DAILY
     Route: 065
     Dates: start: 20111221
  5. VALSARTAN. [Concomitant]
     Active Substance: VALSARTAN
     Dosage: 160 MG DAILY
     Route: 065
  6. CYNT [Concomitant]
     Dosage: 0.03 MG, DAILY
     Route: 065
  7. AMLODIPINE [Concomitant]
     Active Substance: AMLODIPINE BESYLATE
     Indication: PRODUCT USED FOR UNKNOWN INDICATION
     Route: 065
     Dates: start: 20120213, end: 20120514
  8. DIOVAN [Suspect]
     Active Substance: VALSARTAN
     Indication: PRODUCT USED FOR UNKNOWN INDICATION
     Dosage: 160 MG, QD
     Route: 065
     Dates: start: 20120714
  9. BELOC ZOK [Concomitant]
     Active Substance: METOPROLOL SUCCINATE
     Indication: HYPERTENSION
     Dosage: 47.5 MG, QD
     Route: 048
     Dates: start: 20120721
  10. ASPIRIN. [Concomitant]
     Active Substance: ASPIRIN
     Indication: HYPERTENSION
     Dosage: 100 MG, QD
     Route: 048
     Dates: start: 20100902
  11. CARMEN [Concomitant]
     Indication: PRODUCT USED FOR UNKNOWN INDICATION
     Dosage: 10 MG
     Route: 065
     Dates: start: 20120714
  12. CYNT [Concomitant]
     Indication: PRODUCT USED FOR UNKNOWN INDICATION
     Dosage: 0.3 MG, QD
     Route: 065
     Dates: start: 20110714
  13. TASIGNA [Suspect]
     Active Substance: NILOTINIB
     Indication: CHRONIC MYELOID LEUKAEMIA
     Dosage: 800 MG, QD
     Route: 048
     Dates: start: 20111111, end: 20120714
  14. TILIDIN ^RATIOPHARM^ [Concomitant]
     Active Substance: NALOXONE HYDROCHLORIDE\TILIDINE HYDROCHLORIDE
     Indication: PAIN
     Dosage: 50 MG
     Route: 065
     Dates: start: 20120515
  15. NEXIUM [Concomitant]
     Active Substance: ESOMEPRAZOLE MAGNESIUM
     Indication: OESOPHAGITIS
     Dosage: 20 MG, QD
     Route: 048
  16. TOREM [Concomitant]
     Active Substance: TORSEMIDE
     Indication: PRODUCT USED FOR UNKNOWN INDICATION
     Dosage: 10 MG
     Route: 065
     Dates: start: 20080410, end: 20120727
  17. CARMEN [Concomitant]
     Dosage: 20 MG, DAILY
     Route: 065
  18. OMEPRAZOLE. [Concomitant]
     Active Substance: OMEPRAZOLE
     Indication: PRODUCT USED FOR UNKNOWN INDICATION
     Dosage: 20 MG
     Route: 065
     Dates: start: 20061201
  19. BIFITERAL [Concomitant]
     Active Substance: LACTULOSE
     Indication: PRODUCT USED FOR UNKNOWN INDICATION
     Route: 065
     Dates: start: 20120804
  20. SAROTEN [Concomitant]
     Active Substance: AMITRIPTYLINE
     Indication: PRODUCT USED FOR UNKNOWN INDICATION
     Route: 065
     Dates: start: 20120213, end: 20120514
  21. LYRICA [Suspect]
     Active Substance: PREGABALIN
     Indication: PAIN
     Dosage: 75?150 MG, DAILY
     Route: 048
     Dates: start: 20080410, end: 20120514
  22. SIMVASTATIN. [Concomitant]
     Active Substance: SIMVASTATIN
     Indication: METABOLIC DISORDER
     Dosage: 40 MG, QD
     Route: 048
     Dates: start: 20100902
  23. PREDNISOLONE. [Concomitant]
     Active Substance: PREDNISOLONE
     Indication: PRODUCT USED FOR UNKNOWN INDICATION
     Dosage: 5 MG, QD
     Route: 065
     Dates: start: 20100517, end: 20120515
  24. PREDNISOLONE. [Concomitant]
     Active Substance: PREDNISOLONE
     Dosage: 5 MG, QD
     Route: 065
     Dates: start: 20120727
  25. NEBIVOLOL. [Concomitant]
     Active Substance: NEBIVOLOL
     Indication: PRODUCT USED FOR UNKNOWN INDICATION
     Dosage: 5 MG, QD
     Route: 065
     Dates: start: 20111221, end: 20120714
  26. DIOVAN [Suspect]
     Active Substance: VALSARTAN
     Dosage: 25 MG, QD
     Route: 065
  27. EUCERIN [Concomitant]
     Active Substance: ENSULIZOLE\EUCERIN\OCTINOXATE\OCTISALATE\TITANIUM DIOXIDE\ZINC OXIDE
     Indication: RENAL FAILURE
     Dosage: 10 MG, QD
     Route: 048
     Dates: start: 20120714
  28. EUCERIN [Concomitant]
     Active Substance: ENSULIZOLE\EUCERIN\OCTINOXATE\OCTISALATE\TITANIUM DIOXIDE\ZINC OXIDE
     Dosage: 20 MG, QD
     Route: 065
  29. EXFORGE HCT [Concomitant]
     Active Substance: AMLODIPINE BESYLATE\HYDROCHLOROTHIAZIDE\VALSARTAN
     Indication: HYPERTENSION
     Dosage: 1 DF, QD
     Route: 048
  30. URAPIDIL [Concomitant]
     Active Substance: URAPIDIL
     Indication: PRODUCT USED FOR UNKNOWN INDICATION
     Dosage: 180 MG, DAILY
     Route: 065

REACTIONS (20)
  - Bladder dysfunction [Recovered/Resolved]
  - Chronic kidney disease [Not Recovered/Not Resolved]
  - Hypertension [Recovered/Resolved]
  - Pleural effusion [Recovering/Resolving]
  - Ventricular hypokinesia [Unknown]
  - Acute kidney injury [Not Recovered/Not Resolved]
  - General physical health deterioration [Recovered/Resolved]
  - Hyponatraemia [Recovered/Resolved]
  - Aortic valve sclerosis [Unknown]
  - Death [Fatal]
  - Disorientation [Not Recovered/Not Resolved]
  - Urine output decreased [Unknown]
  - Pulmonary congestion [Recovered/Resolved]
  - Bladder hypertrophy [Not Recovered/Not Resolved]
  - Cardiac failure [Recovering/Resolving]
  - Ascites [Recovering/Resolving]
  - Transient ischaemic attack [Recovered/Resolved]
  - Inflammation [Recovered/Resolved]
  - Abdominal pain lower [Recovered/Resolved]
  - Speech disorder [Recovered/Resolved]

NARRATIVE: CASE EVENT DATE: 20120514
